FAERS Safety Report 8006382-6 (Version None)
Quarter: 2011Q4

REPORT INFORMATION
  Report Type: 
  Country: None (occurrence: None)
  Receive Date: 20111226
  Receipt Date: 20111213
  Transmission Date: 20120403
  Serious: Yes (Hospitalization)
  Sender: FDA-Public Use
  Company Number: PHHY2011FR109161

PATIENT
  Sex: Male

DRUGS (2)
  1. TASIGNA [Suspect]
     Indication: CHRONIC MYELOID LEUKAEMIA
     Dosage: 800 MG, DAILY
     Dates: start: 20100910, end: 20100920
  2. TASIGNA [Suspect]
     Dosage: 400 MG
     Dates: start: 20100920, end: 20110817

REACTIONS (2)
  - POLYNEUROPATHY [None]
  - PARAPARESIS [None]
